FAERS Safety Report 5467434-8 (Version None)
Quarter: 2007Q3

REPORT INFORMATION
  Report Type: 
  Country: None (occurrence: None)
  Receive Date: 20070925
  Receipt Date: 20070913
  Transmission Date: 20080115
  Serious: Yes (Death)
  Sender: FDA-Public Use
  Company Number: FR-PFIZER INC-2007077621

PATIENT
  Age: 3 Year
  Sex: Male

DRUGS (1)
  1. ATARAX [Suspect]
     Dates: start: 20070201, end: 20070201

REACTIONS (2)
  - DRUG ADMINISTRATION ERROR [None]
  - FALL [None]
